FAERS Safety Report 7324143-8 (Version None)
Quarter: 2011Q1

REPORT INFORMATION
  Report Type: 
  Country: None (occurrence: None)
  Receive Date: 20110301
  Receipt Date: 20110214
  Transmission Date: 20110831
  Serious: Yes (Hospitalization)
  Sender: FDA-Public Use
  Company Number: OM-BAUSCH-2011BL000947

PATIENT
  Age: 42 Day
  Sex: Female

DRUGS (6)
  1. CYCLOPENTOLATE HCL [Suspect]
     Indication: RETINOPATHY OF PREMATURITY
     Route: 047
  2. NOVESINE OPHTHALMIC SOLUTION [Concomitant]
  3. MULTI-VITAMINS [Concomitant]
  4. IRON [Concomitant]
  5. INFANT FORMULAS [Concomitant]
  6. PHENYLEPHRINE [Suspect]
     Indication: RETINOPATHY OF PREMATURITY
     Route: 047

REACTIONS (1)
  - NECROTISING COLITIS [None]
